FAERS Safety Report 8088783-3 (Version None)
Quarter: 2012Q1

REPORT INFORMATION
  Report Type: 
  Country: None (occurrence: None)
  Receive Date: 20120128
  Receipt Date: 20110429
  Transmission Date: 20120608
  Serious: No
  Sender: FDA-Public Use
  Company Number: US-ABBOTT-11P-163-0722758-00

PATIENT
  Age: 50 Year
  Sex: Male

DRUGS (11)
  1. SINGULAIR [Concomitant]
     Indication: HYPERSENSITIVITY
     Dates: start: 20080401
  2. ASPIRIN [Concomitant]
     Indication: CARDIOVASCULAR EVENT PROPHYLAXIS
     Dates: start: 20060101
  3. LASIX [Concomitant]
     Indication: JOINT SWELLING
     Dates: start: 20100401
  4. MULTIVITAMIN WALMART [Concomitant]
     Indication: PRODUCT USED FOR UNKNOWN INDICATION
  5. EQUATE CHILDREN'S MULTIVITAMIN COMPLETE [Concomitant]
     Indication: PRODUCT USED FOR UNKNOWN INDICATION
  6. JANUMET (WITH METFORMIN) [Concomitant]
     Indication: DIABETES MELLITUS
     Dosage: 50/500 MG PILL; TWICE DAILY
     Dates: start: 20100401
  7. NAPROXEN [Concomitant]
     Indication: ARTHRITIS
     Dates: start: 20100401
  8. ALLEGRA [Concomitant]
     Indication: HYPERSENSITIVITY
     Dates: start: 20110301
  9. HUMIRA [Suspect]
     Indication: PSORIASIS
     Dates: start: 20101101
  10. ZOLOFT [Concomitant]
     Indication: DEPRESSION
     Dosage: IN THE MORNING; 2 IN 1 DAY
     Dates: start: 20110101
  11. BUSPAR [Concomitant]
     Indication: DEPRESSION
     Dates: start: 20110101

REACTIONS (1)
  - INJECTION SITE PAIN [None]
